FAERS Safety Report 11234474 (Version 2)
Quarter: 2015Q3

REPORT INFORMATION
  Report Type: Spontaneous
  Country: US (occurrence: US)
  Receive Date: 20150702
  Receipt Date: 20150706
  Transmission Date: 20151125
  Serious: Yes (Hospitalization)
  Sender: FDA-Public Use
  Company Number: US-WATSON-2015-12656

PATIENT
  Age: 44 Year
  Sex: Male

DRUGS (3)
  1. TESTOSTERONE CYPIONATE (WATSON LABORATORIES) [Suspect]
     Active Substance: TESTOSTERONE CYPIONATE
     Indication: BLOOD TESTOSTERONE DECREASED
     Dosage: 0.5 ML, ONCE WEEKLY
     Route: 030
     Dates: start: 20150522, end: 20150612
  2. ELAVIL [Concomitant]
     Active Substance: AMITRIPTYLINE HYDROCHLORIDE
     Indication: DEPRESSION
     Dosage: 20 MG, DAILY
     Route: 048
     Dates: start: 20150604
  3. TESTOSTERONE CYPIONATE (WATSON LABORATORIES) [Suspect]
     Active Substance: TESTOSTERONE CYPIONATE
     Dosage: 0.5 ML, ONCE WEEKLY
     Route: 030
     Dates: start: 201501, end: 201502

REACTIONS (15)
  - Nausea [Not Recovered/Not Resolved]
  - Cold sweat [Not Recovered/Not Resolved]
  - Muscular weakness [Not Recovered/Not Resolved]
  - Myalgia [Unknown]
  - Abdominal pain upper [Unknown]
  - Blood testosterone free decreased [Unknown]
  - Headache [Unknown]
  - Abdominal pain [Not Recovered/Not Resolved]
  - Paraesthesia [Unknown]
  - Vision blurred [Not Recovered/Not Resolved]
  - Dizziness [Not Recovered/Not Resolved]
  - Memory impairment [Not Recovered/Not Resolved]
  - Gastrointestinal disorder [Unknown]
  - Injection site inflammation [Unknown]
  - Injection site pain [Unknown]

NARRATIVE: CASE EVENT DATE: 2015
